FAERS Safety Report 7934943-9 (Version None)
Quarter: 2011Q4

REPORT INFORMATION
  Report Type: 
  Country: None (occurrence: None)
  Receive Date: 20111118
  Receipt Date: 20111107
  Transmission Date: 20120403
  Serious: Yes (Other)
  Sender: FDA-Public Use
  Company Number: 2011AP002644

PATIENT
  Age: 76 Year
  Sex: Female

DRUGS (5)
  1. RAMIPRIL [Suspect]
     Dates: start: 20110705, end: 20111018
  2. ENZIRA (INFLUENZA VACCINE) [Concomitant]
  3. INFLUENZA VACCINE (INFLUENZA VACCINE) [Concomitant]
  4. CLENIL /00212602/ (BECLOMETASONE DIPROPIONATE) [Concomitant]
  5. ALBUTEROL SULFATE [Concomitant]

REACTIONS (2)
  - COUGH [None]
  - VOMITING [None]
